FAERS Safety Report 14331797 (Version 1)
Quarter: 2017Q4

REPORT INFORMATION
  Report Type: Spontaneous
  Country: US (occurrence: US)
  Receive Date: 20171228
  Receipt Date: 20171228
  Transmission Date: 20180321
  Serious: Yes (Other)
  Sender: FDA-Public Use
  Company Number: PHEH2017US041618

PATIENT
  Sex: Female

DRUGS (5)
  1. ILEVRO [Suspect]
     Active Substance: NEPAFENAC
     Indication: MACULAR OEDEMA
  2. APRISO [Concomitant]
     Active Substance: MESALAMINE
     Indication: COLITIS
     Route: 065
  3. ILEVRO [Suspect]
     Active Substance: NEPAFENAC
     Indication: UVEITIS
     Dosage: 1 GTT, QD
     Route: 047
     Dates: start: 20171206
  4. PREDNISONE. [Concomitant]
     Active Substance: PREDNISONE
     Indication: INFLAMMATION
     Dosage: 4 GTT, QD
     Route: 047
  5. PREDNISONE. [Concomitant]
     Active Substance: PREDNISONE
     Dosage: 1 GTT, QD
     Route: 047

REACTIONS (3)
  - Photophobia [Unknown]
  - Ocular hyperaemia [Unknown]
  - Macular fibrosis [Recovering/Resolving]
